FAERS Safety Report 20393003 (Version 3)
Quarter: 2022Q1

REPORT INFORMATION
  Report Type: Spontaneous
  Country: US (occurrence: None)
  Receive Date: 20220128
  Receipt Date: 20220304
  Transmission Date: 20220424
  Serious: Yes (Hospitalization)
  Sender: FDA-Public Use
  Company Number: 2022A035577

PATIENT
  Age: 955 Month
  Sex: Male
  Weight: 127 kg

DRUGS (4)
  1. SYMBICORT [Suspect]
     Active Substance: BUDESONIDE\FORMOTEROL FUMARATE DIHYDRATE
     Indication: Asthma
     Dosage: 160/4.5 MCG, 2 PUFFS ,TWO TIMES A DAY
     Route: 055
  2. SYMBICORT [Suspect]
     Active Substance: BUDESONIDE\FORMOTEROL FUMARATE DIHYDRATE
     Indication: Emphysema
     Dosage: 160/4.5 MCG, 2 PUFFS ,TWO TIMES A DAY
     Route: 055
  3. BUDESONIDE\FORMOTEROL\GLYCOPYRRONIUM [Suspect]
     Active Substance: BUDESONIDE\FORMOTEROL\GLYCOPYRRONIUM
     Indication: Asthma
     Dosage: 2 PUFFS, TWO TIMES A DAY
     Route: 055
     Dates: start: 2020
  4. BUDESONIDE\FORMOTEROL\GLYCOPYRRONIUM [Suspect]
     Active Substance: BUDESONIDE\FORMOTEROL\GLYCOPYRRONIUM
     Indication: Chronic obstructive pulmonary disease
     Dosage: 2 PUFFS, TWO TIMES A DAY
     Route: 055
     Dates: start: 2020

REACTIONS (15)
  - Hernia [Recovered/Resolved]
  - Lung disorder [Unknown]
  - Cardiac failure congestive [Recovering/Resolving]
  - Dyspnoea [Not Recovered/Not Resolved]
  - Disease progression [Unknown]
  - Weight decreased [Unknown]
  - Movement disorder [Unknown]
  - Muscle disorder [Recovering/Resolving]
  - Gait disturbance [Unknown]
  - Eating disorder [Unknown]
  - Intentional product misuse [Unknown]
  - Product label issue [Unknown]
  - Wrong technique in device usage process [Unknown]
  - Device malfunction [Unknown]
  - Device delivery system issue [Unknown]

NARRATIVE: CASE EVENT DATE: 20181101
